FAERS Safety Report 20042453 (Version 2)
Quarter: 2021Q4

REPORT INFORMATION
  Report Type: Report from Study
  Country: US (occurrence: None)
  Receive Date: 20211108
  Receipt Date: 20211201
  Transmission Date: 20220304
  Serious: Yes (Other)
  Sender: FDA-Public Use
  Company Number: US-ROCHE-2171346

PATIENT
  Age: 61 Year
  Sex: Female

DRUGS (3)
  1. ATEZOLIZUMAB [Suspect]
     Active Substance: ATEZOLIZUMAB
     Indication: Colorectal cancer metastatic
     Dosage: OVER 60 MINUTES ON DAY 1 COURSES REPEAT EVERY 21 DAYS IN THE ABSENCE OF DISEASE PROGRESSION OR UNACC
     Route: 042
     Dates: start: 20171212
  2. CAPECITABINE [Suspect]
     Active Substance: CAPECITABINE
     Indication: Colorectal cancer metastatic
     Dosage: ON DAYS 1-14. COURSES REPEAT EVERY 21 DAYS IN THE ABSENCE OF DISEASE PROGRESSION OR UNACCEPTABLE TOX
     Route: 048
     Dates: start: 20171212
  3. BEVACIZUMAB [Suspect]
     Active Substance: BEVACIZUMAB
     Indication: Colorectal cancer metastatic
     Dosage: BEVACIZUMAB IV OVER 30-90 MINUTES ON DAY 1. COURSES REPEAT EVERY 21 DAYS IN THE ABSENCE OF DISEASE P
     Route: 042
     Dates: start: 20171212

REACTIONS (1)
  - Hypothyroidism [Unknown]

NARRATIVE: CASE EVENT DATE: 20180813
